FAERS Safety Report 10308743 (Version 2)
Quarter: 2014Q4

REPORT INFORMATION
  Report Type: Spontaneous
  Country: US (occurrence: US)
  Receive Date: 20140716
  Receipt Date: 20141007
  Transmission Date: 20150528
  Serious: Yes (Hospitalization)
  Sender: FDA-Public Use
  Company Number: US-BAYER-2014-106605

PATIENT
  Age: 32 Year
  Sex: Female

DRUGS (1)
  1. MIRENA [Suspect]
     Active Substance: LEVONORGESTREL
     Indication: MENORRHAGIA
     Dosage: 20 MCG/24HR, CONT
     Route: 015
     Dates: start: 2004, end: 20110829

REACTIONS (9)
  - Uterine perforation [Not Recovered/Not Resolved]
  - Medical device pain [None]
  - Procedural pain [Not Recovered/Not Resolved]
  - Device misuse [None]
  - Injury [Not Recovered/Not Resolved]
  - Medical device discomfort [Not Recovered/Not Resolved]
  - Pain [Not Recovered/Not Resolved]
  - Menstruation irregular [None]
  - Bacterial infection [None]

NARRATIVE: CASE EVENT DATE: 201108
